FAERS Safety Report 22816437 (Version 5)
Quarter: 2023Q4

REPORT INFORMATION
  Report Type: Spontaneous
  Country: US (occurrence: US)
  Receive Date: 20230811
  Receipt Date: 20231107
  Transmission Date: 20240109
  Serious: Yes (Other)
  Sender: FDA-Public Use
  Company Number: US-Stemline Therapeutics, Inc.-2023ST002319

PATIENT
  Age: 68 Year
  Sex: Female

DRUGS (1)
  1. ORSERDU [Suspect]
     Active Substance: ELACESTRANT
     Indication: Product used for unknown indication
     Dosage: 345MG ONCE DAILY
     Route: 048
     Dates: start: 20230705

REACTIONS (14)
  - Eye infection bacterial [Not Recovered/Not Resolved]
  - Ocular cyst [Not Recovered/Not Resolved]
  - Product size issue [Not Recovered/Not Resolved]
  - Presyncope [Unknown]
  - Tumour marker increased [Unknown]
  - Dysphotopsia [Unknown]
  - Product dose omission issue [Unknown]
  - Cyst removal [Unknown]
  - Weight increased [Unknown]
  - Decreased appetite [Unknown]
  - Diarrhoea [Recovered/Resolved]
  - Abdominal pain [Not Recovered/Not Resolved]
  - Nausea [Not Recovered/Not Resolved]
  - Vomiting [Not Recovered/Not Resolved]

NARRATIVE: CASE EVENT DATE: 20230801
